FAERS Safety Report 13468263 (Version 1)
Quarter: 2017Q2

REPORT INFORMATION
  Report Type: Spontaneous
  Country: US (occurrence: US)
  Receive Date: 20170421
  Receipt Date: 20170421
  Transmission Date: 20170830
  Serious: Yes (Other)
  Sender: FDA-Public Use
  Company Number: US-TARO-2017TAR00276

PATIENT
  Age: 54 Year
  Sex: Male

DRUGS (1)
  1. CLOTRIMAZOLE TOPICAL SOLUTION 1% (OTC) [Suspect]
     Active Substance: CLOTRIMAZOLE
     Indication: EAR INFECTION
     Dosage: UNK
     Route: 001
     Dates: start: 201607

REACTIONS (8)
  - Off label use [Unknown]
  - Drug ineffective for unapproved indication [Unknown]
  - Burning sensation [None]
  - Dizziness [Unknown]
  - Application site pain [Unknown]
  - Incorrect route of drug administration [Unknown]
  - Deafness [Not Recovered/Not Resolved]
  - Eating disorder symptom [Not Recovered/Not Resolved]

NARRATIVE: CASE EVENT DATE: 201607
